FAERS Safety Report 10565811 (Version 2)
Quarter: 2014Q4

REPORT INFORMATION
  Report Type: Report from Study
  Country: JP (occurrence: JP)
  Receive Date: 20141105
  Receipt Date: 20141203
  Transmission Date: 20150529
  Serious: Yes (Other)
  Sender: FDA-Public Use
  Company Number: JP-SHIONOGI, INC-2014001086

PATIENT
  Age: 7 Year
  Sex: Male

DRUGS (2)
  1. FINIBAX [Suspect]
     Active Substance: DORIPENEM MONOHYDRATE
     Indication: CHOLECYSTITIS
     Route: 041
     Dates: start: 20131127, end: 20131128
  2. WYSTAL [Concomitant]
     Indication: CHOLECYSTITIS
     Route: 065
     Dates: start: 20131126, end: 20131127

REACTIONS (1)
  - Histiocytosis haematophagic [Unknown]

NARRATIVE: CASE EVENT DATE: 20131128
